FAERS Safety Report 25490262 (Version 3)
Quarter: 2025Q3

REPORT INFORMATION
  Report Type: Spontaneous
  Country: IN (occurrence: IN)
  Receive Date: 20250628
  Receipt Date: 20250709
  Transmission Date: 20251021
  Serious: Yes (Death, Hospitalization, Other)
  Sender: IPSEN BIOPHARMACEUTICALS, INC.
  Company Number: IN-I.R.I.S.-S25008798

PATIENT
  Age: 57 Year
  Sex: Male

DRUGS (1)
  1. ONIVYDE [Suspect]
     Active Substance: IRINOTECAN HYDROCHLORIDE
     Indication: Product used for unknown indication

REACTIONS (4)
  - Mechanical ventilation [Fatal]
  - Death [Fatal]
  - Haemorrhage [Fatal]
  - Critical illness [Fatal]

NARRATIVE: CASE EVENT DATE: 20250616
